FAERS Safety Report 10610816 (Version 1)
Quarter: 2014Q4

REPORT INFORMATION
  Report Type: Spontaneous
  Country: US (occurrence: US)
  Receive Date: 20141126
  Receipt Date: 20141126
  Transmission Date: 20150529
  Serious: No
  Sender: FDA-Public Use
  Company Number: US-GLAXOSMITHKLINE-A1076422A

PATIENT

DRUGS (2)
  1. ALBUTEROL. [Concomitant]
     Active Substance: ALBUTEROL
  2. FLOVENT [Suspect]
     Active Substance: FLUTICASONE PROPIONATE
     Indication: EMPHYSEMA
     Dosage: ROTA 100MCG, AT 1 PUFF TWICE DAILY. REDUCED TO 1 PUFF DAILY.
     Route: 055
     Dates: start: 20140508, end: 20140531

REACTIONS (3)
  - Respiration abnormal [Recovered/Resolved]
  - Drug effect increased [Recovered/Resolved]
  - Incorrect dose administered [Recovered/Resolved]

NARRATIVE: CASE EVENT DATE: 20140515
